FAERS Safety Report 4392940-7 (Version None)
Quarter: 2004Q3

REPORT INFORMATION
  Report Type: 
  Country: None (occurrence: None)
  Receive Date: 20040702
  Receipt Date: 20040618
  Transmission Date: 20050211
  Serious: Yes (Hospitalization)
  Sender: FDA-Public Use
  Company Number: K200400776

PATIENT
  Age: 76 Year
  Sex: Female

DRUGS (17)
  1. ALTACE [Suspect]
     Indication: HYPERTENSION
     Dosage: 5 MG, QD,ORAL
     Route: 048
     Dates: start: 20020201
  2. PIRETANIDE (PIRETANIDE) 1 TABLET [Suspect]
     Indication: HYPERTENSION
     Dosage: 1 TABLET, QD, ORAL
     Route: 048
     Dates: start: 20020201
  3. AMARYL [Suspect]
     Indication: DIABETES MELLITUS NON-INSULIN-DEPENDENT
     Dosage: 2 MG, QD, ORAL
     Route: 048
     Dates: start: 20031101, end: 20040305
  4. ACTRAPID HUMAN (INSULIN HUMAN) 72IU [Suspect]
     Indication: DIABETES MELLITUS NON-INSULIN-DEPENDENT
     Dosage: 72 IU, QD, SUBCUTANEOUS; 32 IU, QD, SUBCUTANEOUS; 26 IU, QD, SUBCUTANEOUS
     Route: 058
     Dates: start: 20031101, end: 20040101
  5. ACTRAPID HUMAN (INSULIN HUMAN) 72IU [Suspect]
     Indication: DIABETES MELLITUS NON-INSULIN-DEPENDENT
     Dosage: 72 IU, QD, SUBCUTANEOUS; 32 IU, QD, SUBCUTANEOUS; 26 IU, QD, SUBCUTANEOUS
     Route: 058
     Dates: start: 20040101, end: 20040301
  6. ACTRAPID HUMAN (INSULIN HUMAN) 72IU [Suspect]
     Indication: DIABETES MELLITUS NON-INSULIN-DEPENDENT
     Dosage: 72 IU, QD, SUBCUTANEOUS; 32 IU, QD, SUBCUTANEOUS; 26 IU, QD, SUBCUTANEOUS
     Route: 058
     Dates: start: 20040301
  7. BELOC ZOK (METOPROLOL SUCCINATE) TABLET, 47.5MG [Suspect]
     Indication: HYPERTENSION
     Dosage: 47.5 MG, QD, ORAL
     Route: 048
     Dates: start: 20020101
  8. PROTAPHAN HUMAN (INSULIN HUMAN INJECTION, ISOPHANE) SOLUTION, 24IU [Suspect]
     Indication: DIABETES MELLITUS NON-INSULIN-DEPENDENT
     Dosage: 24 IU, QD, SUBCUTANEOUS; 20 IU, QD, SUBCUTANEOUS; 10 IU, QD, SUBCUTANEOUS
     Route: 058
     Dates: end: 20040301
  9. PROTAPHAN HUMAN (INSULIN HUMAN INJECTION, ISOPHANE) SOLUTION, 24IU [Suspect]
     Indication: DIABETES MELLITUS NON-INSULIN-DEPENDENT
     Dosage: 24 IU, QD, SUBCUTANEOUS; 20 IU, QD, SUBCUTANEOUS; 10 IU, QD, SUBCUTANEOUS
     Route: 058
     Dates: start: 20031101
  10. PROTAPHAN HUMAN (INSULIN HUMAN INJECTION, ISOPHANE) SOLUTION, 24IU [Suspect]
     Indication: DIABETES MELLITUS NON-INSULIN-DEPENDENT
     Dosage: 24 IU, QD, SUBCUTANEOUS; 20 IU, QD, SUBCUTANEOUS; 10 IU, QD, SUBCUTANEOUS
     Route: 058
     Dates: start: 20040301
  11. AQUAPHOR (PETROLATUM) TABLET [Concomitant]
  12. DIGITOXIN (DIGITOXIN) TABLET [Concomitant]
  13. FALITHROM ^FAHLBERG^ (PHENPROCOUMON) TABLET [Concomitant]
  14. METHIZOL (THIAMAZOLE) TABLET [Concomitant]
  15. NORVASC [Concomitant]
  16. SEREVENT (SALMETEROL XINAFOATE) POWDER [Concomitant]
  17. UNAT (FUROSEMIDE) TABLET [Concomitant]

REACTIONS (5)
  - COMA [None]
  - DRUG INTERACTION [None]
  - GLYCOSYLATED HAEMOGLOBIN INCREASED [None]
  - MARKEDLY REDUCED DIETARY INTAKE [None]
  - SHOCK HYPOGLYCAEMIC [None]
